FAERS Safety Report 6936035-4 (Version None)
Quarter: 2010Q3

REPORT INFORMATION
  Report Type: 
  Country: None (occurrence: None)
  Receive Date: 20100816
  Receipt Date: 20090805
  Transmission Date: 20110219
  Serious: Yes (Other)
  Sender: FDA-Public Use
  Company Number: US-WYE-H10475409

PATIENT
  Age: 67 Year
  Sex: Male
  Weight: 95.6 kg

DRUGS (14)
  1. TYGACIL [Suspect]
     Indication: OSTEOMYELITIS
     Dosage: 50 MG 1X PER 12 HR, INTRAVENOUS
     Route: 042
     Dates: start: 20090728
  2. PHENYTOIN [Concomitant]
  3. ASPIRIN [Concomitant]
  4. TUMS (CALCIUM CARBONATE/MAGNESIUM CARBONATE/ MAGNESIUM TRISILICATE) [Concomitant]
  5. LIPITOR [Concomitant]
  6. PLAVIX [Concomitant]
  7. DOCUSATE (DOCUSATE) [Concomitant]
  8. LOVENOX [Concomitant]
  9. LASIX [Concomitant]
  10. PROTONIX [Concomitant]
  11. SENNA (SENNA) [Concomitant]
  12. SPIRIVA (TIOTROPIUM BROMIE) [Concomitant]
  13. ARANESP [Concomitant]
  14. METOLAZONE [Concomitant]

REACTIONS (4)
  - BLOOD THROMBOPLASTIN [None]
  - BLOOD UREA [None]
  - BLOOD UREA INCREASED [None]
  - INTERNATIONAL NORMALISED RATIO INCREASED [None]
